FAERS Safety Report 4778232-2 (Version None)
Quarter: 2005Q3

REPORT INFORMATION
  Report Type: 
  Country: None (occurrence: None)
  Receive Date: 20050926
  Receipt Date: 20030425
  Transmission Date: 20060218
  Serious: Yes (Other)
  Sender: FDA-Public Use
  Company Number: US-BRISTOL-MYERS SQUIBB COMPANY-12258927

PATIENT
  Age: 41 Year
  Sex: Female

DRUGS (7)
  1. STADOL [Suspect]
     Indication: MIGRAINE
     Route: 045
     Dates: start: 19940101, end: 19970701
  2. STADOL [Suspect]
     Indication: PAIN
     Route: 030
     Dates: start: 19850101, end: 19940501
  3. ACETAMINOPHEN [Concomitant]
  4. NAPROXEN [Concomitant]
  5. PHENERGAN [Concomitant]
  6. AMITRIPTYLINE HCL [Concomitant]
  7. VISTARIL [Concomitant]

REACTIONS (1)
  - DEPENDENCE [None]
